FAERS Safety Report 7308609-2 (Version None)
Quarter: 2011Q1

REPORT INFORMATION
  Report Type: 
  Country: None (occurrence: None)
  Receive Date: 20110211
  Receipt Date: 20110127
  Transmission Date: 20110831
  Serious: Yes (Hospitalization)
  Sender: FDA-Public Use
  Company Number: 2011AT000054

PATIENT
  Age: 62 Year
  Sex: Male

DRUGS (4)
  1. ISOSORBIDE DINITRATE [Suspect]
     Indication: NON-CARDIAC CHEST PAIN
     Dosage: 5 MG;SL
     Route: 060
     Dates: start: 20101220, end: 20101220
  2. INVESTIGATIONAL DRUG (INVESTIGATIONAL DRUG) [Suspect]
     Indication: ACUTE CORONARY SYNDROME
     Dosage: PO
     Route: 048
     Dates: start: 20101111
  3. CON MEDS [Concomitant]
  4. PREV MEDS [Concomitant]

REACTIONS (2)
  - CHEST DISCOMFORT [None]
  - NON-CARDIAC CHEST PAIN [None]
